FAERS Safety Report 13511626 (Version 1)
Quarter: 2017Q2

REPORT INFORMATION
  Report Type: Report from Study
  Country: US (occurrence: BR)
  Receive Date: 20170504
  Receipt Date: 20170504
  Transmission Date: 20170830
  Serious: Yes (Death)
  Sender: FDA-Public Use
  Company Number: US-SUNOVION-2017SUN001887

PATIENT
  Sex: Female
  Weight: 54 kg

DRUGS (1)
  1. INDACATEROL AND GLYCOPYRROLATE [Suspect]
     Active Substance: GLYCOPYRROLATE\INDACATEROL MALEATE
     Indication: EMPHYSEMA
     Dosage: UNK UNK, QD
     Route: 055

REACTIONS (1)
  - Infarction [Fatal]
